FAERS Safety Report 12935066 (Version 3)
Quarter: 2016Q4

REPORT INFORMATION
  Report Type: Spontaneous
  Country: FR (occurrence: FR)
  Receive Date: 20161113
  Receipt Date: 20161213
  Transmission Date: 20170207
  Serious: Yes (Other)
  Sender: FDA-Public Use
  Company Number: FR-009507513-1611FRA005805

PATIENT
  Age: 27 Year
  Sex: Female

DRUGS (8)
  1. AERIUS [Suspect]
     Active Substance: DESLORATADINE
     Indication: HYPERSENSITIVITY
     Dosage: 1 DF, QD
     Route: 048
  2. CREON [Suspect]
     Active Substance: PANCRELIPASE AMYLASE\PANCRELIPASE LIPASE\PANCRELIPASE PROTEASE
     Indication: CYSTIC FIBROSIS
     Dosage: 7 DF, QD
     Route: 048
  3. VENTILASTIN NOVOLIZER [Suspect]
     Active Substance: ALBUTEROL SULFATE
     Indication: CYSTIC FIBROSIS
     Route: 055
  4. SINGULAIR [Suspect]
     Active Substance: MONTELUKAST SODIUM
     Indication: CYSTIC FIBROSIS
     Dosage: UNK
     Route: 048
  5. ORELOX [Suspect]
     Active Substance: CEFPODOXIME
     Indication: CYSTIC FIBROSIS
     Dosage: 2 DF, BID
     Route: 048
  6. TOBI [Suspect]
     Active Substance: TOBRAMYCIN
     Indication: CYSTIC FIBROSIS
     Route: 055
  7. ZITHROMAX [Suspect]
     Active Substance: AZITHROMYCIN DIHYDRATE
     Indication: CYSTIC FIBROSIS
     Dosage: 1 DF, QD
     Route: 048
  8. PARIET [Suspect]
     Active Substance: RABEPRAZOLE SODIUM
     Indication: OESOPHAGITIS
     Dosage: 1 DF, QD
     Route: 048

REACTIONS (1)
  - Abortion spontaneous [Recovering/Resolving]

NARRATIVE: CASE EVENT DATE: 20141023
